FAERS Safety Report 4388246-2 (Version None)
Quarter: 2004Q2

REPORT INFORMATION
  Report Type: 
  Country: None (occurrence: None)
  Receive Date: 20040625
  Receipt Date: 20040607
  Transmission Date: 20050107
  Serious: Yes (Hospitalization)
  Sender: FDA-Public Use
  Company Number: S04-USA-00532-03

PATIENT
  Age: 76 Year
  Sex: Male
  Weight: 59.1944 kg

DRUGS (22)
  1. LEXAPRO [Suspect]
     Indication: DEPRESSION
     Dosage: 10 MG QD PO
     Route: 048
     Dates: end: 20040101
  2. CELEXA [Suspect]
     Indication: DEPRESSION
     Dosage: 30 MG QD PO
     Route: 048
  3. LISINOPRIL [Suspect]
     Indication: HYPERTENSION
     Dosage: 2.5 MG BID
     Dates: end: 20031101
  4. LASIX [Suspect]
     Indication: CARDIAC FAILURE CONGESTIVE
     Dosage: 20 MG QD PO
     Route: 048
     Dates: end: 20031117
  5. LASIX [Suspect]
     Indication: HYPERTENSION
     Dosage: 20 MG QD PO
     Route: 048
     Dates: end: 20031117
  6. KAYEXALATE [Concomitant]
  7. COREG [Concomitant]
  8. PROTONIX [Concomitant]
  9. ATIVAN [Concomitant]
  10. TYLENOL [Concomitant]
  11. VITAMIN B-12 [Concomitant]
  12. COLACE (DOCUSATE SODIUM) [Concomitant]
  13. FERROUS SULFATE TAB [Concomitant]
  14. MAALOX [Concomitant]
  15. MILK OF MAGNESIA TAB [Concomitant]
  16. NORVASC [Concomitant]
  17. ASPIRIN [Concomitant]
  18. ISOSORBIDE MONONITRATE [Concomitant]
  19. AVELOX [Concomitant]
  20. ALBUTEROL [Concomitant]
  21. XANAX [Concomitant]
  22. COMBIVENT [Concomitant]

REACTIONS (24)
  - ABDOMINAL AORTIC BRUIT [None]
  - ACUTE PRERENAL FAILURE [None]
  - ASTHENIA [None]
  - BLOOD CALCIUM DECREASED [None]
  - BLOOD MAGNESIUM INCREASED [None]
  - CARDIAC FAILURE CONGESTIVE [None]
  - CARDIAC MURMUR [None]
  - CHEST WALL PAIN [None]
  - CHRONIC OBSTRUCTIVE AIRWAYS DISEASE EXACERBATED [None]
  - COMMUNICATION DISORDER [None]
  - DIASTOLIC DYSFUNCTION [None]
  - GASTRITIS [None]
  - KIDNEY SMALL [None]
  - MITRAL VALVE INCOMPETENCE [None]
  - PNEUMONIA [None]
  - PROTEIN URINE PRESENT [None]
  - PULMONARY HYPERTENSION [None]
  - RED BLOOD CELLS URINE POSITIVE [None]
  - RENAL ARTERY STENOSIS [None]
  - RENAL FAILURE CHRONIC [None]
  - RESPIRATORY DISTRESS [None]
  - RESPIRATORY RATE INCREASED [None]
  - TACHYCARDIA [None]
  - WHITE BLOOD CELLS URINE POSITIVE [None]
